FAERS Safety Report 14787229 (Version 2)
Quarter: 2018Q2

REPORT INFORMATION
  Report Type: Spontaneous
  Country: US (occurrence: US)
  Receive Date: 20180421
  Receipt Date: 20180504
  Transmission Date: 20180711
  Serious: Yes (Death)
  Sender: FDA-Public Use
  Company Number: US-VIFOR (INTERNATIONAL) INC.-VIT-2018-03575

PATIENT
  Age: 37 Year
  Sex: Female
  Weight: 76.73 kg

DRUGS (22)
  1. TRAZODONE HYDROCHLORIDE. [Concomitant]
     Active Substance: TRAZODONE HYDROCHLORIDE
  2. VIMPAT [Concomitant]
     Active Substance: LACOSAMIDE
  3. BUMETANIDE. [Concomitant]
     Active Substance: BUMETANIDE
  4. ROPINIROLE HYDROCHLORIDE. [Concomitant]
     Active Substance: ROPINIROLE HYDROCHLORIDE
  5. TUMS [Concomitant]
     Active Substance: CALCIUM CARBONATE
  6. BENADRYL EXTRA STRENGTH [Concomitant]
  7. ERGOCALCIFEROL. [Concomitant]
     Active Substance: ERGOCALCIFEROL
  8. GABAPENTIN. [Concomitant]
     Active Substance: GABAPENTIN
  9. LEVOTHYROXINE SODIUM. [Concomitant]
     Active Substance: LEVOTHYROXINE SODIUM
  10. SENNA [Concomitant]
     Active Substance: SENNA LEAF\SENNOSIDES\SENNOSIDES A AND B
  11. ACETYLSALICYLIC ACID [Concomitant]
     Active Substance: ASPIRIN
  12. NORCO [Concomitant]
     Active Substance: ACETAMINOPHEN\HYDROCODONE BITARTRATE
  13. PYRIDOXINE HYDROCHLORIDE~~THIAMINE HYDROCHLORIDE~~RIBOFLAVIN~~NICOTINAMIDE~~CALCIUM PANTOTHENATE [Concomitant]
  14. COREG [Concomitant]
     Active Substance: CARVEDILOL
  15. ZOFRAN ODT [Concomitant]
     Active Substance: ONDANSETRON HYDROCHLORIDE
  16. TOBREX [Concomitant]
     Active Substance: TOBRAMYCIN
  17. VELTASSA [Suspect]
     Active Substance: PATIROMER
     Indication: END STAGE RENAL DISEASE
     Route: 048
     Dates: start: 20170922
  18. ATIVAN [Concomitant]
     Active Substance: LORAZEPAM
  19. LACTULOSE. [Concomitant]
     Active Substance: LACTULOSE
  20. NORVASC [Concomitant]
     Active Substance: AMLODIPINE BESYLATE
  21. CELEXA [Concomitant]
     Active Substance: CITALOPRAM HYDROBROMIDE
  22. MELATONIN [Concomitant]
     Active Substance: MELATONIN

REACTIONS (2)
  - Off label use [Unknown]
  - Arteriosclerosis [Fatal]

NARRATIVE: CASE EVENT DATE: 20180320
